FAERS Safety Report 25337311 (Version 1)
Quarter: 2025Q2

REPORT INFORMATION
  Report Type: Spontaneous
  Country: GR (occurrence: GR)
  Receive Date: 20250520
  Receipt Date: 20250520
  Transmission Date: 20250717
  Serious: Yes (Hospitalization, Other)
  Sender: BRISTOL-MYERS SQUIBB COMPANY
  Company Number: GR-BRISTOL-MYERS SQUIBB COMPANY-2025-069273

PATIENT
  Sex: Male

DRUGS (1)
  1. THALIDOMIDE [Suspect]
     Active Substance: THALIDOMIDE
     Indication: Myeloblastoma
     Route: 048

REACTIONS (3)
  - Status epilepticus [Unknown]
  - Encephalopathy [Unknown]
  - Off label use [Unknown]
